FAERS Safety Report 5734618-0 (Version None)
Quarter: 2008Q2

REPORT INFORMATION
  Report Type: 
  Country: None (occurrence: None)
  Receive Date: 20080512
  Receipt Date: 20080430
  Transmission Date: 20081010
  Serious: Yes (Other)
  Sender: FDA-Public Use
  Company Number: PHHY2008MX06952

PATIENT
  Age: 72 Year
  Sex: Female

DRUGS (1)
  1. ZELMAC [Suspect]
     Indication: IRRITABLE BOWEL SYNDROME
     Dosage: 3 MG, BID
     Route: 048
     Dates: start: 20050401

REACTIONS (2)
  - FALL [None]
  - FOOT FRACTURE [None]
